FAERS Safety Report 23814274 (Version 1)
Quarter: 2024Q2

REPORT INFORMATION
  Report Type: Spontaneous
  Country: US (occurrence: US)
  Receive Date: 20240503
  Receipt Date: 20240503
  Transmission Date: 20240716
  Serious: Yes (Life-Threatening, Hospitalization, Other)
  Sender: FDA-Public Use
  Company Number: None

PATIENT
  Age: 70 Year
  Sex: Female

DRUGS (16)
  1. CARVEDILOL [Suspect]
     Active Substance: CARVEDILOL
     Indication: Product used for unknown indication
     Dosage: TWICE DAILY
  2. METOPROLOL [Suspect]
     Active Substance: METOPROLOL
     Indication: Atrial flutter
     Route: 042
  3. METOPROLOL [Suspect]
     Active Substance: METOPROLOL
     Indication: Atrioventricular block
     Route: 042
  4. AMIODARONE [Suspect]
     Active Substance: AMIODARONE
     Indication: Atrial flutter
  5. AMIODARONE [Suspect]
     Active Substance: AMIODARONE
     Indication: Atrioventricular block
  6. DIGOXIN [Suspect]
     Active Substance: DIGOXIN
     Indication: Atrial flutter
     Dosage: TWO DOSES OF DIGOXIN 0.25 MG
  7. DIGOXIN [Suspect]
     Active Substance: DIGOXIN
     Indication: Atrial flutter
     Dosage: LOADING DOSE
  8. LASIX [Suspect]
     Active Substance: FUROSEMIDE
     Indication: Diuretic therapy
  9. LASIX [Suspect]
     Active Substance: FUROSEMIDE
     Dosage: TWICE DAILY
     Route: 042
  10. PLAVIX [Concomitant]
     Active Substance: CLOPIDOGREL BISULFATE
     Indication: Product used for unknown indication
     Dosage: RESUMED
  11. PLAVIX [Concomitant]
     Active Substance: CLOPIDOGREL BISULFATE
  12. APIXABAN [Concomitant]
     Active Substance: APIXABAN
     Indication: Product used for unknown indication
     Dosage: TWICE DAILY
  13. APIXABAN [Concomitant]
     Active Substance: APIXABAN
     Dosage: TWICE DAILY RESUMED
  14. OXYGEN [Concomitant]
     Active Substance: OXYGEN
     Indication: Oxygen therapy
  15. ATORVASTATIN [Concomitant]
     Active Substance: ATORVASTATIN
     Indication: Product used for unknown indication
  16. ATORVASTATIN [Concomitant]
     Active Substance: ATORVASTATIN

REACTIONS (3)
  - Electrocardiogram QT prolonged [Recovering/Resolving]
  - Torsade de pointes [Recovered/Resolved]
  - Sinus bradycardia [Unknown]
